FAERS Safety Report 7261866-3 (Version None)
Quarter: 2011Q1

REPORT INFORMATION
  Report Type: 
  Country: None (occurrence: None)
  Receive Date: 20110130
  Receipt Date: 20101129
  Transmission Date: 20110831
  Serious: No
  Sender: FDA-Public Use
  Company Number: US-ABBOTT-10P-163-0688810-00

PATIENT
  Sex: Female
  Weight: 109.87 kg

DRUGS (10)
  1. LOTREL [Concomitant]
     Indication: HYPERTENSION
  2. ALLEGRA [Concomitant]
     Indication: SINUS DISORDER
  3. LASIX [Concomitant]
     Indication: HYPERTENSION
  4. CLONIDINE [Concomitant]
     Indication: HYPERTENSION
  5. HUMIRA [Suspect]
     Indication: PSORIASIS
     Dates: start: 20100701
  6. MICARDIS [Concomitant]
     Indication: HYPERTENSION
  7. LIPITOR [Concomitant]
     Indication: BLOOD CHOLESTEROL INCREASED
  8. DEPAKOTE [Concomitant]
     Indication: HEADACHE
  9. METFORMIN [Concomitant]
     Indication: DIABETES MELLITUS
  10. ALBUTEROL [Concomitant]
     Indication: BRONCHITIS

REACTIONS (2)
  - PLATELET COUNT DECREASED [None]
  - CONTUSION [None]
